FAERS Safety Report 7116168-2 (Version None)
Quarter: 2010Q4

REPORT INFORMATION
  Report Type: 
  Country: None (occurrence: None)
  Receive Date: 20101122
  Receipt Date: 20101111
  Transmission Date: 20110411
  Serious: Yes (Hospitalization)
  Sender: FDA-Public Use
  Company Number: PHHY2010DE60928

PATIENT
  Sex: Male

DRUGS (4)
  1. ICANDRA [Suspect]
     Indication: DIABETES MELLITUS
     Dosage: 1 DF, BID
     Route: 048
     Dates: start: 20100820, end: 20100831
  2. RASILEZ [Suspect]
     Indication: HYPERTENSION
     Dosage: 1 DF, QD
     Route: 048
  3. PANGROL [Concomitant]
     Indication: PANCREATIC INSUFFICIENCY
     Dosage: 4000 U DAILY
  4. PIRETANIDE [Concomitant]
     Indication: HYPERTENSION

REACTIONS (3)
  - DIARRHOEA [None]
  - PAIN [None]
  - PANCREATITIS ACUTE [None]
